FAERS Safety Report 6115785-6 (Version None)
Quarter: 2009Q1

REPORT INFORMATION
  Report Type: 
  Country: None (occurrence: None)
  Receive Date: 20090313
  Receipt Date: 20090306
  Transmission Date: 20090719
  Serious: Yes (Death, Hospitalization)
  Sender: FDA-Public Use
  Company Number: US-GILEAD-2009-0020504

PATIENT
  Sex: Female
  Weight: 96.702 kg

DRUGS (14)
  1. LETAIRIS [Suspect]
     Indication: PULMONARY HYPERTENSION
     Route: 048
     Dates: start: 20081217
  2. LETAIRIS [Suspect]
     Route: 048
     Dates: start: 20080201, end: 20081216
  3. REVATIO [Concomitant]
     Indication: PULMONARY HYPERTENSION
     Dates: start: 20081201
  4. LASIX [Concomitant]
  5. HYZAAR [Concomitant]
  6. TOPROL-XL [Concomitant]
  7. ADVAIR HFA [Concomitant]
  8. SPIRIVA [Concomitant]
  9. OXYGEN [Concomitant]
  10. SIMVASTATIN [Concomitant]
  11. ASPIRIN [Concomitant]
  12. LUMIGAN [Concomitant]
  13. PILOCARPINE [Concomitant]
  14. TIMOLOL MALEATE [Concomitant]

REACTIONS (4)
  - CHRONIC OBSTRUCTIVE PULMONARY DISEASE [None]
  - PULMONARY EMBOLISM [None]
  - PULMONARY HYPERTENSION [None]
  - RESPIRATORY FAILURE [None]
